FAERS Safety Report 6309114-2 (Version None)
Quarter: 2009Q3

REPORT INFORMATION
  Report Type: 
  Country: None (occurrence: None)
  Receive Date: 20090812
  Receipt Date: 20090713
  Transmission Date: 20100115
  Serious: Yes (Congenital Anomaly)
  Sender: FDA-Public Use
  Company Number: 8049960

PATIENT

DRUGS (1)
  1. LEVETIRACETAM [Suspect]
     Dosage: 150 MG /D; TRP
     Route: 064

REACTIONS (2)
  - CONGENITAL MITRAL VALVE INCOMPETENCE [None]
  - MATERNAL DRUGS AFFECTING FOETUS [None]
